FAERS Safety Report 20326598 (Version 1)
Quarter: 2022Q1

REPORT INFORMATION
  Report Type: Spontaneous
  Country: US (occurrence: US)
  Receive Date: 20220112
  Receipt Date: 20220112
  Transmission Date: 20220423
  Serious: Yes (Death, Hospitalization, Other)
  Sender: FDA-Public Use
  Company Number: US-APOTEX-2022AP001949

PATIENT
  Age: 2 Year
  Sex: Male

DRUGS (2)
  1. FENTANYL [Suspect]
     Active Substance: FENTANYL
     Indication: Product used for unknown indication
     Dosage: UNK
     Route: 048
  2. HYDRALAZINE [Suspect]
     Active Substance: HYDRALAZINE HYDROCHLORIDE
     Indication: Product used for unknown indication
     Dosage: UNK
     Route: 048

REACTIONS (9)
  - Cardio-respiratory arrest [Fatal]
  - Cardiac arrest [Fatal]
  - Hypoxia [Fatal]
  - Pulmonary oedema [Fatal]
  - Brain oedema [Fatal]
  - Toxicity to various agents [Fatal]
  - Unresponsive to stimuli [Fatal]
  - Prescription drug used without a prescription [Unknown]
  - Accidental exposure to product [Fatal]

NARRATIVE: CASE EVENT DATE: 20200101
